FAERS Safety Report 8107114-3 (Version None)
Quarter: 2011Q4

REPORT INFORMATION
  Report Type: 
  Country: None (occurrence: None)
  Receive Date: 20111227
  Receipt Date: 20111003
  Transmission Date: 20120403
  Serious: No
  Sender: FDA-Public Use
  Company Number: PHEH2011US04468

PATIENT
  Age: 42 Year
  Sex: Male
  Weight: 97 kg

DRUGS (3)
  1. BACLOFEN [Concomitant]
  2. FAMPRIDINE (FAMPRIDINE) [Concomitant]
  3. GILENYA [Suspect]
     Indication: RELAPSING-REMITTING MULTIPLE SCLEROSIS
     Dosage: 0.5 MG, QD, ORAL
     Route: 048
     Dates: start: 20110727, end: 20110915

REACTIONS (3)
  - URINARY INCONTINENCE [None]
  - CONSTIPATION [None]
  - DIARRHOEA [None]
